FAERS Safety Report 26181212 (Version 1)
Quarter: 2025Q4

REPORT INFORMATION
  Report Type: Spontaneous
  Country: EU (occurrence: EU)
  Receive Date: 20251221
  Receipt Date: 20251221
  Transmission Date: 20260119
  Serious: Yes (Life-Threatening)
  Sender: MYLAN
  Company Number: None

PATIENT
  Age: 35 Year
  Sex: Male
  Weight: 139 kg

DRUGS (16)
  1. SERTRALINE [Suspect]
     Active Substance: SERTRALINE HYDROCHLORIDE
     Indication: Poisoning deliberate
     Dosage: 1400 MILLIGRAM, TOTAL
     Route: 061
     Dates: start: 20251018, end: 20251018
  2. SERTRALINE [Suspect]
     Active Substance: SERTRALINE HYDROCHLORIDE
     Dosage: 1400 MILLIGRAM, TOTAL
     Route: 048
     Dates: start: 20251018, end: 20251018
  3. SERTRALINE [Suspect]
     Active Substance: SERTRALINE HYDROCHLORIDE
     Dosage: 1400 MILLIGRAM, TOTAL
     Route: 048
     Dates: start: 20251018, end: 20251018
  4. SERTRALINE [Suspect]
     Active Substance: SERTRALINE HYDROCHLORIDE
     Dosage: 1400 MILLIGRAM, TOTAL
     Route: 061
     Dates: start: 20251018, end: 20251018
  5. QUETIAPINE [Suspect]
     Active Substance: QUETIAPINE
     Indication: Poisoning deliberate
     Dosage: 2100 MILLIGRAM, TOTAL
     Route: 061
     Dates: start: 20251018, end: 20251018
  6. QUETIAPINE [Suspect]
     Active Substance: QUETIAPINE
     Dosage: 2100 MILLIGRAM, TOTAL
     Route: 048
     Dates: start: 20251018, end: 20251018
  7. QUETIAPINE [Suspect]
     Active Substance: QUETIAPINE
     Dosage: 2100 MILLIGRAM, TOTAL
     Route: 048
     Dates: start: 20251018, end: 20251018
  8. QUETIAPINE [Suspect]
     Active Substance: QUETIAPINE
     Dosage: 2100 MILLIGRAM, TOTAL
     Route: 061
     Dates: start: 20251018, end: 20251018
  9. MIRTAZAPINE [Suspect]
     Active Substance: MIRTAZAPINE
     Indication: Poisoning deliberate
     Dosage: 210 MILLIGRAM, TOTAL
     Route: 061
     Dates: start: 20251018, end: 20251018
  10. MIRTAZAPINE [Suspect]
     Active Substance: MIRTAZAPINE
     Dosage: 210 MILLIGRAM, TOTAL
     Route: 048
     Dates: start: 20251018, end: 20251018
  11. MIRTAZAPINE [Suspect]
     Active Substance: MIRTAZAPINE
     Dosage: 210 MILLIGRAM, TOTAL
     Route: 048
     Dates: start: 20251018, end: 20251018
  12. MIRTAZAPINE [Suspect]
     Active Substance: MIRTAZAPINE
     Dosage: 210 MILLIGRAM, TOTAL
     Route: 061
     Dates: start: 20251018, end: 20251018
  13. PRAMIPEXOLE [Suspect]
     Active Substance: PRAMIPEXOLE
     Indication: Poisoning deliberate
     Dosage: 22.05 MILLIGRAM, TOTAL
     Route: 061
     Dates: start: 20251018, end: 20251018
  14. PRAMIPEXOLE [Suspect]
     Active Substance: PRAMIPEXOLE
     Dosage: 22.05 MILLIGRAM, TOTAL
     Route: 048
     Dates: start: 20251018, end: 20251018
  15. PRAMIPEXOLE [Suspect]
     Active Substance: PRAMIPEXOLE
     Dosage: 22.05 MILLIGRAM, TOTAL
     Route: 048
     Dates: start: 20251018, end: 20251018
  16. PRAMIPEXOLE [Suspect]
     Active Substance: PRAMIPEXOLE
     Dosage: 22.05 MILLIGRAM, TOTAL
     Route: 061
     Dates: start: 20251018, end: 20251018

REACTIONS (3)
  - Poisoning deliberate [Recovered/Resolved]
  - Status epilepticus [Recovered/Resolved]
  - Intentional overdose [Recovered/Resolved]

NARRATIVE: CASE EVENT DATE: 20251018
